FAERS Safety Report 8075436-0 (Version None)
Quarter: 2012Q1

REPORT INFORMATION
  Report Type: 
  Country: None (occurrence: None)
  Receive Date: 20120120
  Receipt Date: 20120109
  Transmission Date: 20120608
  Serious: Yes (Hospitalization)
  Sender: FDA-Public Use
  Company Number: 2012MA000644

PATIENT
  Age: 5 Year
  Sex: Male

DRUGS (3)
  1. FEVERALL [Suspect]
     Indication: VIRAL INFECTION
     Dosage: RTL
  2. VALIUM [Concomitant]
  3. DIAZEPAM [Suspect]
     Indication: GRAND MAL CONVULSION
     Dosage: 0.5 MG/KG;RTL

REACTIONS (8)
  - NAUSEA [None]
  - VOMITING [None]
  - PALLOR [None]
  - RESPIRATORY ACIDOSIS [None]
  - STATUS EPILEPTICUS [None]
  - NUCLEAR MAGNETIC RESONANCE IMAGING ABNORMAL [None]
  - HYPOVENTILATION [None]
  - COMPLEX PARTIAL SEIZURES [None]
